FAERS Safety Report 21033852 (Version 1)
Quarter: 2022Q2

REPORT INFORMATION
  Report Type: Spontaneous
  Country: US (occurrence: None)
  Receive Date: 20220630
  Receipt Date: 20220630
  Transmission Date: 20220721
  Serious: No
  Sender: FDA-Public Use
  Company Number: None

PATIENT
  Age: 29 Year
  Sex: Male
  Weight: 76.5 kg

DRUGS (1)
  1. EMGALITY [Suspect]
     Active Substance: GALCANEZUMAB-GNLM
     Indication: Product used for unknown indication
     Dosage: OTHER QUANTITY : 1 INJECTION(S);?OTHER FREQUENCY : EVERY MONTH;?OTHER ROUTE : SUBQ;?
     Route: 050
     Dates: start: 20190601

REACTIONS (4)
  - Skin induration [None]
  - Skin haemorrhage [None]
  - Post procedural complication [None]
  - Product temperature excursion issue [None]

NARRATIVE: CASE EVENT DATE: 20220630
